FAERS Safety Report 17900419 (Version 1)
Quarter: 2020Q2

REPORT INFORMATION
  Report Type: Spontaneous
  Country: US (occurrence: US)
  Receive Date: 20200616
  Receipt Date: 20200616
  Transmission Date: 20200714
  Serious: Yes (Death)
  Sender: FDA-Public Use
  Company Number: US-TELIGENT, INC-20200600021

PATIENT

DRUGS (4)
  1. METRONIDAZOLE. [Concomitant]
     Active Substance: METRONIDAZOLE
  2. ASPIRIN [ACETYLSALICYLIC ACID] [Concomitant]
     Active Substance: ASPIRIN
  3. CIPROFLOXACIN OPHTHALMIC SOLUTION [Suspect]
     Active Substance: CIPROFLOXACIN HYDROCHLORIDE
     Dosage: UNK
     Route: 048
  4. CIPROFLOXACIN OPHTHALMIC SOLUTION [Suspect]
     Active Substance: CIPROFLOXACIN HYDROCHLORIDE
     Dosage: UNK
     Route: 048

REACTIONS (5)
  - Gastrointestinal motility disorder [Fatal]
  - Clostridium difficile infection [Fatal]
  - Haematochezia [Fatal]
  - Abdominal pain [Fatal]
  - Clostridium difficile colitis [Fatal]
